FAERS Safety Report 12466542 (Version 2)
Quarter: 2016Q2

REPORT INFORMATION
  Report Type: Spontaneous
  Country: US (occurrence: US)
  Receive Date: 20160615
  Receipt Date: 20160621
  Transmission Date: 20160815
  Serious: Yes (Other)
  Sender: FDA-Public Use
  Company Number: US-BAUSCH-BL-2016-010912

PATIENT
  Age: 63 Year
  Sex: Female

DRUGS (4)
  1. GABAPENTIN. [Concomitant]
     Active Substance: GABAPENTIN
     Indication: PRODUCT USED FOR UNKNOWN INDICATION
     Dosage: NIGHTLY
     Route: 048
  2. ZYCLARA [Suspect]
     Active Substance: IMIQUIMOD
     Indication: ACTINIC KERATOSIS
     Dosage: NIGHTLY BEFORE BEDTIME
     Route: 061
     Dates: start: 20160312, end: 20160318
  3. ZYCLARA [Suspect]
     Active Substance: IMIQUIMOD
     Dosage: NIGHTLY BEFORE BEDTIME
     Route: 061
     Dates: start: 20160320, end: 20160324
  4. ZYCLARA [Suspect]
     Active Substance: IMIQUIMOD
     Dosage: NIGHTLY BEFORE BEDTIME
     Route: 061
     Dates: start: 20160329, end: 20160331

REACTIONS (9)
  - Herpes zoster [Recovered/Resolved]
  - Scar [Not Recovered/Not Resolved]
  - Application site erythema [Not Recovered/Not Resolved]
  - Local swelling [Not Recovered/Not Resolved]
  - Neoplasm malignant [Unknown]
  - Application site discomfort [Recovering/Resolving]
  - Application site pain [Not Recovered/Not Resolved]
  - Abdominal pain [Not Recovered/Not Resolved]
  - Application site scab [Unknown]

NARRATIVE: CASE EVENT DATE: 201603
